FAERS Safety Report 26179119 (Version 1)
Quarter: 2025Q4

REPORT INFORMATION
  Report Type: Spontaneous
  Country: ID (occurrence: ID)
  Receive Date: 20251219
  Receipt Date: 20251219
  Transmission Date: 20260117
  Serious: Yes (Other)
  Sender: RANBAXY
  Company Number: ID-SUN PHARMACEUTICAL INDUSTRIES LTD-2025RR-542508

PATIENT
  Age: 52 Year
  Sex: Male

DRUGS (5)
  1. AMIODARONE [Interacting]
     Active Substance: AMIODARONE
     Indication: Heart rate
     Dosage: 900 MILLIGRAM, OVER 24 HOURS
     Route: 042
  2. AMIODARONE [Interacting]
     Active Substance: AMIODARONE
     Dosage: 200 MILLIGRAM, TID
     Route: 048
  3. WARFARIN [Interacting]
     Active Substance: WARFARIN
     Indication: Product used for unknown indication
     Dosage: UNK
     Route: 042
  4. FUROSEMIDE [Suspect]
     Active Substance: FUROSEMIDE
     Indication: Product used for unknown indication
     Dosage: UNK
     Route: 065
  5. LEVOFLOXACIN [Suspect]
     Active Substance: LEVOFLOXACIN
     Indication: Product used for unknown indication
     Dosage: UNK
     Route: 065

REACTIONS (4)
  - Renal impairment [Unknown]
  - Drug interaction [Unknown]
  - International normalised ratio increased [Unknown]
  - Liver injury [Unknown]
